FAERS Safety Report 7351440-2 (Version None)
Quarter: 2011Q1

REPORT INFORMATION
  Report Type: 
  Country: None (occurrence: None)
  Receive Date: 20110314
  Receipt Date: 20110304
  Transmission Date: 20110831
  Serious: Yes (Hospitalization)
  Sender: FDA-Public Use
  Company Number: PHHO2011AT02028

PATIENT
  Sex: Female
  Weight: 58 kg

DRUGS (13)
  1. TEMESTA [Concomitant]
  2. PANTOLOC [Concomitant]
  3. MAXI-KALZ [Concomitant]
  4. ASPIRIN [Concomitant]
  5. NICORETTE [Concomitant]
  6. FRAGMIN [Concomitant]
  7. MEXILEN [Concomitant]
  8. CITALOPRAM [Concomitant]
  9. ATORVASTATIN [Concomitant]
     Indication: HYPERLIPIDAEMIA
  10. LETROZOLE [Suspect]
     Indication: BREAST CANCER
     Dosage: 2.5 MG, QD
     Route: 048
     Dates: start: 20061229
  11. PREDNISOLONE [Concomitant]
  12. PANTOPRAZOLE [Concomitant]
  13. TRAMAL [Concomitant]

REACTIONS (8)
  - SPLINT APPLICATION [None]
  - SURGERY [None]
  - CONCOMITANT DISEASE PROGRESSION [None]
  - GANGRENE [None]
  - EXTREMITY NECROSIS [None]
  - FINGER AMPUTATION [None]
  - POLYARTHRITIS [None]
  - CAROTID ARTERY STENOSIS [None]
